APPROVED DRUG PRODUCT: DOXYCYCLINE HYCLATE
Active Ingredient: DOXYCYCLINE HYCLATE
Strength: EQ 200MG BASE
Dosage Form/Route: TABLET, DELAYED RELEASE;ORAL
Application: A200856 | Product #004 | TE Code: AB
Applicant: HERITAGE PHARMACEUTICALS INC DBA AVET PHARMACEUTICALS INC
Approved: Nov 13, 2018 | RLD: No | RS: Yes | Type: RX